FAERS Safety Report 7402603-9 (Version None)
Quarter: 2011Q2

REPORT INFORMATION
  Report Type: 
  Country: None (occurrence: None)
  Receive Date: 20110408
  Receipt Date: 20110330
  Transmission Date: 20111010
  Serious: Yes (Other)
  Sender: FDA-Public Use
  Company Number: ES-SHIRE-SPV1-2010-01417

PATIENT
  Age: 45 Year
  Sex: Male

DRUGS (2)
  1. VELAGLUCERASE ALFA [Suspect]
     Indication: GAUCHER'S DISEASE
     Dosage: 2800 IU, 1X/2WKS
     Route: 041
     Dates: start: 20100712, end: 20100806
  2. IMIGLUCERASE [Concomitant]
     Indication: GAUCHER'S DISEASE
     Dosage: 30 IU/KG, UNKNOWN
     Route: 065
     Dates: end: 20100625

REACTIONS (3)
  - DEPRESSED LEVEL OF CONSCIOUSNESS [None]
  - ACCOMMODATION DISORDER [None]
  - DIZZINESS [None]
